FAERS Safety Report 19408872 (Version 1)
Quarter: 2021Q2

REPORT INFORMATION
  Report Type: Spontaneous
  Country: IE (occurrence: IE)
  Receive Date: 20210613
  Receipt Date: 20210613
  Transmission Date: 20210717
  Serious: Yes (Disabling, Other)
  Sender: FDA-Public Use
  Company Number: IE-ASTRAZENECA-2021A506597

PATIENT
  Age: 75 Year
  Sex: Female
  Weight: 81 kg

DRUGS (7)
  1. NEXIUM [Suspect]
     Active Substance: ESOMEPRAZOLE MAGNESIUM
     Indication: GASTRITIS
     Dosage: DAILY DOSE, 20MG20.0MG UNKNOWN
     Route: 048
     Dates: start: 20170801, end: 20210401
  2. BISOPROLOL (GENERIC) [Concomitant]
     Active Substance: BISOPROLOL
     Indication: HYPERTENSION
     Dosage: DAILY DOSE: 2.5MG2.5MG UNKNOWN
     Route: 065
     Dates: start: 20180109
  3. APROVEL [Concomitant]
     Active Substance: IRBESARTAN
     Indication: HYPERTENSION
     Dosage: DAILY DOSE: 300MG300.0MG UNKNOWN
     Route: 065
     Dates: start: 20190730
  4. FUROSEMIDE (G) [Concomitant]
     Indication: CARDIAC FAILURE CONGESTIVE
     Dosage: DAILY DOSE: 40MG40.0MG UNKNOWN
     Route: 065
     Dates: start: 20200130
  5. METFORMIN [Concomitant]
     Active Substance: METFORMIN HYDROCHLORIDE
     Indication: DIABETES MELLITUS
     Dosage: DAILY DOSE: 1500MG
     Route: 065
     Dates: start: 20171101
  6. ATORVASTATIN [Concomitant]
     Active Substance: ATORVASTATIN
     Indication: DYSLIPIDAEMIA
     Dosage: DAILY DOSE: 80MG80.0MG UNKNOWN
     Route: 065
     Dates: start: 20190730
  7. FUROSEMIDE (G) [Concomitant]
     Indication: HYPERTENSION
     Dosage: DAILY DOSE: 40MG40.0MG UNKNOWN
     Route: 065
     Dates: start: 20200130

REACTIONS (3)
  - Impaired quality of life [Recovered/Resolved]
  - Muscle spasms [Recovered/Resolved]
  - Diarrhoea [Recovered/Resolved]

NARRATIVE: CASE EVENT DATE: 20190901
